FAERS Safety Report 7899184-2 (Version None)
Quarter: 2011Q4

REPORT INFORMATION
  Report Type: 
  Country: None (occurrence: None)
  Receive Date: 20111107
  Receipt Date: 20110912
  Transmission Date: 20120403
  Serious: No
  Sender: FDA-Public Use
  Company Number: US-AMGEN-USASP2011046645

PATIENT
  Age: 35 Year
  Sex: Male
  Weight: 90.703 kg

DRUGS (3)
  1. ENBREL [Suspect]
     Indication: PRODUCT USED FOR UNKNOWN INDICATION
     Dosage: 50 MG, QWK
  2. IBUPROFEN (ADVIL) [Concomitant]
     Dosage: 200 MG, UNK
  3. CORTISONE ACETATE [Concomitant]

REACTIONS (1)
  - INJECTION SITE URTICARIA [None]
